FAERS Safety Report 7866163-0 (Version None)
Quarter: 2011Q4

REPORT INFORMATION
  Report Type: 
  Country: None (occurrence: None)
  Receive Date: 20111028
  Receipt Date: 20110503
  Transmission Date: 20120403
  Serious: No
  Sender: FDA-Public Use
  Company Number: US-GLAXOSMITHKLINE-A0925585A

PATIENT
  Age: 61 Year
  Sex: Female

DRUGS (8)
  1. ADVAIR DISKUS 100/50 [Suspect]
     Indication: ASTHMA
     Dosage: 1PUFF TWICE PER DAY
     Route: 055
     Dates: start: 20050501
  2. ASPIRIN [Concomitant]
  3. FISH OIL [Concomitant]
  4. ALBUTEROL [Concomitant]
  5. METFORMIN HCL [Concomitant]
  6. CALTRATE + D [Concomitant]
  7. SINGULAIR [Concomitant]
  8. EXFORGE [Concomitant]

REACTIONS (3)
  - DRUG INEFFECTIVE [None]
  - PRODUCT QUALITY ISSUE [None]
  - DYSPNOEA [None]
